FAERS Safety Report 5371313-4 (Version None)
Quarter: 2007Q2

REPORT INFORMATION
  Report Type: 
  Country: None (occurrence: None)
  Receive Date: 20070615
  Receipt Date: 20061128
  Transmission Date: 20071010
  Serious: Yes (Other)
  Sender: FDA-Public Use
  Company Number: 200615493US

PATIENT
  Age: 67 Year
  Sex: Female

DRUGS (13)
  1. LANTUS [Suspect]
     Indication: DIABETES MELLITUS NON-INSULIN-DEPENDENT
     Dosage: 20 IU QAM;
     Dates: start: 20060101
  2. LANTUS [Suspect]
     Indication: DIABETES MELLITUS NON-INSULIN-DEPENDENT
     Dosage: 20 IU, QPM;
     Dates: start: 20060101
  3. OPTICLIK [Suspect]
     Indication: DIABETES MELLITUS
  4. LISINOPRIL [Concomitant]
  5. NOVOLOG [Concomitant]
  6. SIMVASTATIN [Concomitant]
  7. EZETIMIBE (VYTORIN) [Concomitant]
  8. ACETYLSALICYLIC ACID SRT [Concomitant]
  9. AMARYL [Concomitant]
  10. ATENOLOL [Concomitant]
  11. PENTOSAN POLYSULFATE SODIUM (ELMIRON) [Concomitant]
  12. LATANOPROST (XALATAN /01297301/) [Concomitant]
  13. POLYCARBOPHIL CALCIUM (FIBER) [Concomitant]

REACTIONS (5)
  - ABNORMAL SENSATION IN EYE [None]
  - COLOUR BLINDNESS [None]
  - HYPERGLYCAEMIA [None]
  - INJECTION SITE IRRITATION [None]
  - PAIN IN EXTREMITY [None]
